FAERS Safety Report 18464951 (Version 3)
Quarter: 2021Q1

REPORT INFORMATION
  Report Type: Spontaneous
  Country: JP (occurrence: JP)
  Receive Date: 20201104
  Receipt Date: 20210212
  Transmission Date: 20210419
  Serious: Yes (Hospitalization, Other)
  Sender: FDA-Public Use
  Company Number: JP-TAKEDA-2020TUS047403

PATIENT
  Age: 51 Year
  Sex: Male

DRUGS (9)
  1. YOKUKANSAN [Concomitant]
     Active Substance: HERBALS
     Route: 065
  2. INTUNIV [Suspect]
     Active Substance: GUANFACINE HYDROCHLORIDE
     Dosage: 2 MILLIGRAM, QD
     Route: 048
     Dates: start: 20200908, end: 20201014
  3. INTUNIV [Suspect]
     Active Substance: GUANFACINE HYDROCHLORIDE
     Indication: ATTENTION DEFICIT HYPERACTIVITY DISORDER
     Dosage: 2 MILLIGRAM
     Route: 048
     Dates: start: 202010, end: 20201015
  4. DEPAKENE?R [Concomitant]
     Active Substance: VALPROATE SODIUM
     Indication: EPILEPSY
  5. PAXIL [Concomitant]
     Active Substance: PAROXETINE HYDROCHLORIDE
     Indication: BIPOLAR I DISORDER
  6. PAXIL [Concomitant]
     Active Substance: PAROXETINE HYDROCHLORIDE
     Indication: ANXIETY DISORDER
     Dosage: 12.5 MILLIGRAM, QD
     Route: 048
     Dates: start: 20161128
  7. LIMAS [Concomitant]
     Active Substance: LITHIUM CARBONATE
     Indication: BIPOLAR I DISORDER
     Dosage: 200 MILLIGRAM, QD
     Route: 048
     Dates: start: 20190520
  8. CERCINE [Concomitant]
     Active Substance: DIAZEPAM
     Indication: ANXIETY DISORDER
     Dosage: 10 MILLIGRAM, QD
     Route: 048
     Dates: start: 20200713
  9. DEPAKENE?R [Concomitant]
     Active Substance: VALPROATE SODIUM
     Indication: BIPOLAR I DISORDER
     Dosage: 800 MILLIGRAM, QD
     Route: 048
     Dates: start: 20200511

REACTIONS (3)
  - Arrhythmia [Recovered/Resolved]
  - Atrioventricular block [Recovered/Resolved]
  - Atrial fibrillation [Unknown]

NARRATIVE: CASE EVENT DATE: 2020
